FAERS Safety Report 8102379-6 (Version None)
Quarter: 2012Q1

REPORT INFORMATION
  Report Type: 
  Country: None (occurrence: None)
  Receive Date: 20120201
  Receipt Date: 20120130
  Transmission Date: 20120608
  Serious: Yes (Other)
  Sender: FDA-Public Use
  Company Number: US-PFIZER INC-2012024601

PATIENT
  Sex: Female
  Weight: 77.098 kg

DRUGS (4)
  1. COUMADIN [Concomitant]
     Indication: CEREBROVASCULAR ACCIDENT
     Dosage: 5 MG ONCE FOR SIX DAYS A WEEK AND 2.5 MG ONCE FOR ONE DAY A WEEK
  2. CADUET [Suspect]
     Indication: HYPERTENSION
     Dosage: 10/20 MG, DAILY
     Dates: end: 20120101
  3. LISINOPRIL [Concomitant]
     Indication: HYPERTENSION
     Dosage: 10 MG, DAILY
  4. CADUET [Suspect]
     Indication: BLOOD CHOLESTEROL INCREASED

REACTIONS (2)
  - HYPERTENSION [None]
  - DYSPNOEA [None]
